FAERS Safety Report 19138972 (Version 1)
Quarter: 2021Q2

REPORT INFORMATION
  Report Type: Spontaneous
  Country: US (occurrence: US)
  Receive Date: 20210414
  Receipt Date: 20210414
  Transmission Date: 20210717
  Serious: Yes (Hospitalization)
  Sender: FDA-Public Use
  Company Number: None

PATIENT
  Sex: Female

DRUGS (15)
  1. PANTOPRAZOLE [Concomitant]
     Active Substance: PANTOPRAZOLE
  2. DILANTIN [Concomitant]
     Active Substance: PHENYTOIN
  3. LORATADINE. [Concomitant]
     Active Substance: LORATADINE
  4. LASIX [Concomitant]
     Active Substance: FUROSEMIDE
  5. CYMBALTA [Concomitant]
     Active Substance: DULOXETINE HYDROCHLORIDE
  6. ORENITRAM [Concomitant]
     Active Substance: TREPROSTINIL
  7. AMBRISENTAN 10MG TAB [Suspect]
     Active Substance: AMBRISENTAN
     Indication: PULMONARY ARTERIAL HYPERTENSION
     Route: 048
  8. DEPAKOTE [Concomitant]
     Active Substance: DIVALPROEX SODIUM
  9. OXYCODONE HCL CR [Concomitant]
     Active Substance: OXYCODONE HYDROCHLORIDE
  10. SILDENAFIL. [Concomitant]
     Active Substance: SILDENAFIL
  11. SEROQUEL [Concomitant]
     Active Substance: QUETIAPINE FUMARATE
  12. ONE A DAY WOMEN^S PRENATAL [Concomitant]
  13. GABAPENTIN. [Concomitant]
     Active Substance: GABAPENTIN
  14. ASPIRIN. [Concomitant]
     Active Substance: ASPIRIN
  15. DOK [Concomitant]
     Active Substance: DOCUSATE SODIUM

REACTIONS (2)
  - Cardiac failure congestive [None]
  - Oxygen saturation decreased [None]
